FAERS Safety Report 6153031-8 (Version None)
Quarter: 2009Q2

REPORT INFORMATION
  Report Type: 
  Country: None (occurrence: None)
  Receive Date: 20090413
  Receipt Date: 20090406
  Transmission Date: 20091009
  Serious: Yes (Other)
  Sender: FDA-Public Use
  Company Number: B0569154A

PATIENT
  Sex: Female

DRUGS (3)
  1. SALBUTAMOL [Suspect]
     Indication: ASTHMATIC CRISIS
     Route: 055
     Dates: start: 20090301, end: 20090301
  2. HELICIDINE [Concomitant]
     Indication: COUGH
     Dosage: 15ML PER DAY
     Dates: start: 20090302, end: 20090310
  3. AMOXICILLIN AND CLAVULANATE POTASSIUM [Concomitant]
     Indication: INFECTION
     Dosage: 2G PER DAY
     Dates: start: 20090302, end: 20090310

REACTIONS (3)
  - DRUG INEFFECTIVE [None]
  - PRODUCT QUALITY ISSUE [None]
  - SUFFOCATION FEELING [None]
